FAERS Safety Report 22362855 (Version 2)
Quarter: 2023Q2

REPORT INFORMATION
  Report Type: Report from Study
  Country: JP (occurrence: JP)
  Receive Date: 20230525
  Receipt Date: 20230621
  Transmission Date: 20230721
  Serious: Yes (Death)
  Sender: FDA-Public Use
  Company Number: JP-JNJFOC-20230552606

PATIENT
  Age: 72 Year
  Sex: Male
  Weight: 55 kg

DRUGS (8)
  1. IMBRUVICA [Suspect]
     Active Substance: IBRUTINIB
     Indication: Chronic lymphocytic leukaemia recurrent
     Route: 048
     Dates: start: 20190719, end: 20200911
  2. RITUXIMAB [Concomitant]
     Active Substance: RITUXIMAB
     Indication: Chronic lymphocytic leukaemia recurrent
     Dosage: DOSE UNKNOWN
     Route: 065
     Dates: start: 20200918, end: 20200925
  3. DOXORUBICIN HYDROCHLORIDE [Concomitant]
     Active Substance: DOXORUBICIN HYDROCHLORIDE
     Indication: Chronic lymphocytic leukaemia recurrent
     Dosage: DOSE UNKNOWN
     Route: 065
     Dates: start: 20200918, end: 20200925
  4. SULFAMETHOXAZOLE\TRIMETHOPRIM [Concomitant]
     Active Substance: SULFAMETHOXAZOLE\TRIMETHOPRIM
     Indication: Prophylaxis
     Dosage: DOSE UNKNOWN
     Route: 065
     Dates: start: 20190719, end: 20210310
  5. PREDNISOLONE [Concomitant]
     Active Substance: PREDNISOLONE
     Indication: Chronic lymphocytic leukaemia recurrent
     Dosage: DOSE UNKNOWN
     Route: 065
     Dates: start: 20200918, end: 20200925
  6. CYCLOPHOSPHAMIDE [Concomitant]
     Active Substance: CYCLOPHOSPHAMIDE
     Indication: Chronic lymphocytic leukaemia recurrent
     Dosage: DOSE UNKNOWN
     Route: 065
     Dates: start: 20200918, end: 20200925
  7. VINCRISTINE SULFATE [Concomitant]
     Active Substance: VINCRISTINE SULFATE
     Indication: Chronic lymphocytic leukaemia recurrent
     Dosage: DOSE UNKNOWN
     Route: 065
     Dates: start: 20200918, end: 20200925
  8. FLUCONAZOLE [Concomitant]
     Active Substance: FLUCONAZOLE
     Indication: Infection prophylaxis
     Dosage: DOSE UNKNOWN
     Route: 065
     Dates: start: 20190719, end: 20210310

REACTIONS (1)
  - Chronic lymphocytic leukaemia [Fatal]
